FAERS Safety Report 4723728-2 (Version None)
Quarter: 2005Q3

REPORT INFORMATION
  Report Type: 
  Country: None (occurrence: None)
  Receive Date: 20050720
  Receipt Date: 20050720
  Transmission Date: 20060218
  Serious: Yes (Hospitalization)
  Sender: FDA-Public Use
  Company Number: None

PATIENT
  Age: 78 Year
  Sex: Male
  Weight: 86 kg

DRUGS (2)
  1. PEMETREXED 1040 MG IN 100 ML NS [Suspect]
     Indication: LUNG NEOPLASM MALIGNANT
     Dosage: 500 MG /M2 BSA CALC 2.05 M2 (DAY 1 OF FIRST CYCLE)
     Dates: start: 20050414
  2. PEMETREXED 1040 MG IN 100 ML NS [Suspect]
     Indication: SARCOMA
     Dosage: 500 MG /M2 BSA CALC 2.05 M2 (DAY 1 OF FIRST CYCLE)
     Dates: start: 20050414

REACTIONS (1)
  - PYREXIA [None]
